FAERS Safety Report 24680244 (Version 2)
Quarter: 2025Q3

REPORT INFORMATION
  Report Type: Spontaneous
  Country: US (occurrence: US)
  Receive Date: 20241129
  Receipt Date: 20250809
  Transmission Date: 20251020
  Serious: Yes (Hospitalization, Other)
  Sender: ALEXION PHARMACEUTICALS
  Company Number: US-AstraZeneca-CH-00750985AP

PATIENT
  Sex: Female

DRUGS (1)
  1. SYMBICORT [Suspect]
     Active Substance: BUDESONIDE\FORMOTEROL FUMARATE DIHYDRATE
     Dosage: TWO PUFFS TWO TIMES A DAY.
     Dates: start: 202312

REACTIONS (5)
  - Lower respiratory tract infection [Unknown]
  - Mycoplasma infection [Unknown]
  - Asthma [Unknown]
  - Product lot number issue [Unknown]
  - Product dose omission issue [Unknown]
